FAERS Safety Report 7545410-9 (Version None)
Quarter: 2011Q2

REPORT INFORMATION
  Report Type: 
  Country: None (occurrence: None)
  Receive Date: 20110614
  Receipt Date: 20110609
  Transmission Date: 20111010
  Serious: Yes (Other)
  Sender: FDA-Public Use
  Company Number: US-TEVA-285342USA

PATIENT
  Sex: Male

DRUGS (1)
  1. DIAZOXIDE [Suspect]
     Dates: start: 20110529, end: 20110531

REACTIONS (3)
  - BLOOD GLUCOSE DECREASED [None]
  - CONVULSION [None]
  - DRUG INEFFECTIVE [None]
